FAERS Safety Report 6242494-5 (Version None)
Quarter: 2009Q2

REPORT INFORMATION
  Report Type: 
  Country: None (occurrence: None)
  Receive Date: 20090624
  Receipt Date: 20090612
  Transmission Date: 20091009
  Serious: Yes (Life-Threatening, Hospitalization, Disabling)
  Sender: FDA-Public Use
  Company Number: GR-JNJFOC-20081200075

PATIENT
  Age: 33 Year
  Sex: Male
  Weight: 80 kg

DRUGS (8)
  1. REMICADE [Suspect]
     Dosage: 5TH INFUSION
     Route: 042
  2. REMICADE [Suspect]
     Dosage: 4TH INFUSION
     Route: 042
  3. REMICADE [Suspect]
     Dosage: WEEK 6- 3RD INFUSION
     Route: 042
  4. REMICADE [Suspect]
     Dosage: WEEK 2- 2ND INFUSION
     Route: 042
  5. REMICADE [Suspect]
     Indication: CROHN'S DISEASE
     Dosage: WEEK 0-1ST INFUSION
     Route: 042
  6. AZATHIOPRINE [Suspect]
     Indication: CROHN'S DISEASE
     Dosage: DOSAGE ALSO REPORTED AS ^INTERMITTENTLY FOR 3 TO 4 YEARS^
     Route: 048
  7. SALOFALK [Concomitant]
     Indication: CROHN'S DISEASE
     Route: 048
  8. CORTICOIDS [Concomitant]

REACTIONS (1)
  - HEPATOSPLENIC T-CELL LYMPHOMA [None]
